FAERS Safety Report 6929806-1 (Version None)
Quarter: 2010Q3

REPORT INFORMATION
  Report Type: 
  Country: None (occurrence: None)
  Receive Date: 20100813
  Receipt Date: 20100730
  Transmission Date: 20110219
  Serious: Yes (Hospitalization, Other)
  Sender: FDA-Public Use
  Company Number: 2010002321

PATIENT
  Age: 63 Year
  Sex: Female

DRUGS (4)
  1. ERLOTINIB HYDROCHLORIDE [Suspect]
     Indication: NON-SMALL CELL LUNG CANCER
     Dosage: ORAL
     Route: 048
     Dates: start: 20100226, end: 20100616
  2. ERLOTINIB HYDROCHLORIDE [Suspect]
  3. GEMCITABINE [Suspect]
     Indication: NON-SMALL CELL LUNG CANCER
     Dosage: (1438 MG, 2X PER MONTH), INTRAVENOUS
     Route: 042
     Dates: start: 20100212, end: 20100616
  4. CARBOPLATIN [Suspect]
     Indication: NON-SMALL CELL LUNG CANCER
     Dosage: (287 MG, 1X PER MONTH), INTRAVENOUS
     Route: 042
     Dates: start: 20100212, end: 20100616

REACTIONS (2)
  - ANAEMIA [None]
  - HODGKIN'S DISEASE [None]
